FAERS Safety Report 6703866-5 (Version None)
Quarter: 2010Q2

REPORT INFORMATION
  Report Type: 
  Country: None (occurrence: None)
  Receive Date: 20100430
  Receipt Date: 20100421
  Transmission Date: 20101027
  Serious: Yes (Hospitalization)
  Sender: FDA-Public Use
  Company Number: DE-PFIZER INC-2010050197

PATIENT
  Age: 72 Year
  Sex: Female

DRUGS (20)
  1. NORVASC [Suspect]
     Indication: HYPERTENSION
     Dosage: 5 MG, 1X/DAY
     Route: 048
     Dates: start: 20070910
  2. CIPROFLOXACIN [Suspect]
     Indication: LEUKOPENIA
     Dosage: UNK
     Route: 048
     Dates: start: 20071004, end: 20071011
  3. DECORTIN [Suspect]
     Indication: LYMPHOMA
     Dosage: 100 MG, 1X/DAY
     Route: 048
     Dates: start: 20070914, end: 20070929
  4. PERENTEROL [Suspect]
     Indication: DIARRHOEA
     Dosage: 2 DF, 2X/DAY
     Route: 048
     Dates: start: 20070916, end: 20070929
  5. DELIX [Suspect]
     Indication: HYPERTENSION
     Dosage: 5 MG, 1X/DAY
     Route: 048
     Dates: start: 20070922, end: 20071008
  6. PREDNISOLUT [Suspect]
     Indication: LYMPHOMA
     Dosage: 100 MG, UNK
     Route: 042
     Dates: start: 20070925, end: 20070929
  7. SODIUM CHLORIDE [Suspect]
     Indication: ELECTROLYTE SUBSTITUTION THERAPY
     Dosage: 500 ML, UNK
     Route: 042
     Dates: start: 20070925, end: 20070929
  8. GLUCOSE [Suspect]
     Indication: ELECTROLYTE SUBSTITUTION THERAPY
     Dosage: 500 ML, UNK
     Route: 042
     Dates: start: 20070925, end: 20070929
  9. ENDOXAN [Suspect]
     Indication: LYMPHOMA
     Dosage: 330 MG, UNK
     Route: 042
     Dates: start: 20070925, end: 20070929
  10. ALLOPURINOL [Suspect]
     Indication: TUMOUR LYSIS SYNDROME
     Dosage: 300 MG, 1X/DAY
     Route: 048
     Dates: start: 20070925, end: 20070930
  11. ALLOPURINOL [Suspect]
     Dosage: 300 MG, 1X/DAY
     Route: 048
     Dates: start: 20071001
  12. TORSEMIDE [Suspect]
     Indication: POLYURIA
     Dosage: 10 MG, 1X/DAY
     Route: 048
     Dates: start: 20070926, end: 20070930
  13. ATACAND [Suspect]
     Indication: HYPERTENSION
     Dosage: 4 MG, 2X/DAY
     Route: 048
     Dates: start: 20071008
  14. KEVATRIL [Suspect]
     Indication: LYMPHOMA
     Dosage: 1 MG, UNK
     Route: 042
     Dates: start: 20070925, end: 20070929
  15. LOPEDIUM [Concomitant]
     Indication: DIARRHOEA
     Dosage: 15 GTT, 3X/DAY
     Route: 048
     Dates: start: 20070912, end: 20070918
  16. LORAZEPAM [Concomitant]
     Indication: SLEEP DISORDER
     Dosage: 1 MG, 1X/DAY
     Route: 048
     Dates: start: 20070916, end: 20070917
  17. ACETYLCYSTEINE [Concomitant]
     Indication: DIAGNOSTIC PROCEDURE
     Dosage: UNK
     Route: 042
     Dates: start: 20070921, end: 20070921
  18. IMERON [Concomitant]
     Indication: DIAGNOSTIC PROCEDURE
     Dosage: 150 ML, UNK
     Route: 042
     Dates: start: 20070921, end: 20070921
  19. JONOSTERIL [Concomitant]
     Indication: ELECTROLYTE SUBSTITUTION THERAPY
     Dosage: 2000 ML, UNK
     Route: 042
     Dates: start: 20070921, end: 20070921
  20. VINCRISTINE [Concomitant]
     Indication: LYMPHOMA
     Dosage: 2 MG, UNK
     Route: 042
     Dates: start: 20070925, end: 20070925

REACTIONS (1)
  - STEVENS-JOHNSON SYNDROME [None]
